FAERS Safety Report 21066735 (Version 2)
Quarter: 2022Q3

REPORT INFORMATION
  Report Type: Report from Study
  Country: US (occurrence: US)
  Receive Date: 20220712
  Receipt Date: 20220913
  Transmission Date: 20221027
  Serious: Yes (Hospitalization, Other)
  Sender: FDA-Public Use
  Company Number: US-BRISTOL-MYERS SQUIBB COMPANY-2022-065511

PATIENT
  Age: 57 Year
  Sex: Male

DRUGS (2)
  1. ZEPOSIA [Suspect]
     Active Substance: OZANIMOD HYDROCHLORIDE
     Indication: Colitis ulcerative
     Dosage: DAILY
     Route: 048
     Dates: start: 20220527, end: 20220615
  2. ZEPOSIA [Suspect]
     Active Substance: OZANIMOD HYDROCHLORIDE
     Route: 048
     Dates: start: 20220610

REACTIONS (8)
  - Abdominal pain [Unknown]
  - Arthralgia [Unknown]
  - Splenic injury [Unknown]
  - Haematoma [Unknown]
  - Hyperhidrosis [Unknown]
  - Pyrexia [Unknown]
  - Nausea [Unknown]
  - Gait disturbance [Unknown]
